FAERS Safety Report 18325579 (Version 13)
Quarter: 2023Q2

REPORT INFORMATION
  Report Type: Spontaneous
  Country: US (occurrence: US)
  Receive Date: 20200929
  Receipt Date: 20230414
  Transmission Date: 20230722
  Serious: No
  Sender: FDA-Public Use
  Company Number: US-PFIZER INC-2018143991

PATIENT
  Age: 47 Year
  Sex: Male
  Weight: 136 kg

DRUGS (7)
  1. PRISTIQ EXTENDED-RELEASE [Suspect]
     Active Substance: DESVENLAFAXINE SUCCINATE
     Indication: Myelitis
     Dosage: 50 MG, DAILY, [TAKE 1 TABLET EVERYDAY BY ORAL ROUTE FOR 90 DAYS]
     Route: 048
  2. PRISTIQ EXTENDED-RELEASE [Suspect]
     Active Substance: DESVENLAFAXINE SUCCINATE
     Indication: Irritability
     Dosage: 75 MG
  3. PRISTIQ EXTENDED-RELEASE [Suspect]
     Active Substance: DESVENLAFAXINE SUCCINATE
     Indication: Anger
     Dosage: 75 MG (25 MG AND 50 MG)
  4. PRISTIQ EXTENDED-RELEASE [Suspect]
     Active Substance: DESVENLAFAXINE SUCCINATE
     Dosage: 50 MG, DAILY (50MG 1 TABLET EVERY DAY)
     Route: 048
  5. PRISTIQ EXTENDED-RELEASE [Suspect]
     Active Substance: DESVENLAFAXINE SUCCINATE
     Dosage: 25 MG, DAILY (TAKE 1 TABLET EVERY DAY)
     Route: 048
  6. PRISTIQ EXTENDED-RELEASE [Suspect]
     Active Substance: DESVENLAFAXINE SUCCINATE
     Dosage: 100 MG, DAILY (TAKE 1 TABLET EVERY DAY FOR 90 DAYS)
     Route: 048
  7. PREDNISONE [Concomitant]
     Active Substance: PREDNISONE
     Indication: Antiinflammatory therapy
     Dosage: 10 MG, 1X/DAY
     Route: 048

REACTIONS (5)
  - Frustration tolerance decreased [Unknown]
  - Off label use [Unknown]
  - Intentional product misuse [Unknown]
  - Product dispensing error [Unknown]
  - Drug effective for unapproved indication [Unknown]
